FAERS Safety Report 6709669-X (Version None)
Quarter: 2010Q2

REPORT INFORMATION
  Report Type: 
  Country: None (occurrence: None)
  Receive Date: 20100503
  Receipt Date: 20100503
  Transmission Date: 20101027
  Serious: Yes (Other)
  Sender: FDA-Public Use
  Company Number: None

PATIENT
  Age: 10 Year
  Sex: Male
  Weight: 34.4734 kg

DRUGS (2)
  1. BENADRYL [Suspect]
     Indication: HYPERSENSITIVITY
     Dosage: 1-2 TEASPOON 4-6 HOURS PO
     Route: 048
  2. MOTRIN [Suspect]
     Indication: HEADACHE
     Dosage: 1-3 TEASPOON 6-8 HOURS PO
     Route: 048

REACTIONS (7)
  - DIARRHOEA [None]
  - DIZZINESS [None]
  - GASTRIC DISORDER [None]
  - NAUSEA [None]
  - OVERDOSE [None]
  - SCHOOL REFUSAL [None]
  - VOMITING [None]
